FAERS Safety Report 4726780-3 (Version None)
Quarter: 2005Q3

REPORT INFORMATION
  Report Type: 
  Country: None (occurrence: None)
  Receive Date: 20050725
  Receipt Date: 20050505
  Transmission Date: 20060218
  Serious: No
  Sender: FDA-Public Use
  Company Number: USA050496435

PATIENT
  Age: 29 Year
  Sex: Male

DRUGS (2)
  1. STRATTERA [Suspect]
     Indication: DISTURBANCE IN ATTENTION
     Dosage: 40 MG
     Dates: start: 20050418, end: 20050504
  2. ALLERGY MEDICATION [Concomitant]

REACTIONS (4)
  - ABDOMINAL TENDERNESS [None]
  - DECREASED APPETITE [None]
  - DRY MOUTH [None]
  - DYSURIA [None]
